FAERS Safety Report 14835448 (Version 1)
Quarter: 2018Q2

REPORT INFORMATION
  Report Type: Spontaneous
  Country: AT (occurrence: AT)
  Receive Date: 20180502
  Receipt Date: 20180502
  Transmission Date: 20180711
  Serious: Yes (Death, Life-Threatening)
  Sender: FDA-Public Use
  Company Number: AT-ROCHE-2114672

PATIENT
  Age: 68 Year
  Sex: Female
  Weight: 62 kg

DRUGS (12)
  1. TECENTRIQ [Suspect]
     Active Substance: ATEZOLIZUMAB
     Indication: COLON CANCER
     Route: 042
     Dates: start: 20180213
  2. AKTIFERRIN (AUSTRIA) [Concomitant]
     Indication: IRON DEFICIENCY ANAEMIA
     Route: 065
     Dates: start: 20180213
  3. AMELIOR PLUS HCT [Concomitant]
     Indication: HYPERTONIA
     Dosage: 1 TABLET
     Route: 048
  4. DUROGESIC [Concomitant]
     Active Substance: FENTANYL
     Indication: PAIN PROPHYLAXIS
     Dosage: 12 UG/H
     Route: 065
  5. EUTHYROX [Concomitant]
     Active Substance: LEVOTHYROXINE SODIUM
     Indication: HYPOTHYROIDISM
     Route: 048
  6. LOVENOX [Concomitant]
     Active Substance: ENOXAPARIN SODIUM
     Indication: DEVICE RELATED THROMBOSIS
     Route: 065
     Dates: start: 20180213
  7. COTELLIC [Suspect]
     Active Substance: COBIMETINIB
     Indication: COLON CANCER
     Dosage: 21 DAYS/DAILY
     Route: 048
     Dates: start: 20180213, end: 201803
  8. OLEOVIT [Concomitant]
     Indication: OSTEOPOROSIS
     Route: 048
  9. MOLAXOLE [Concomitant]
     Active Substance: POLYETHYLENE GLYCOL 3350\POTASSIUM CHLORIDE\SODIUM BICARBONATE\SODIUM CHLORIDE
     Indication: PROPHYLAXIS
     Dosage: 2 BAGS
     Route: 065
     Dates: start: 20180213
  10. DUROTIV [Concomitant]
     Active Substance: ESOMEPRAZOLE
     Indication: PROPHYLAXIS
     Route: 048
  11. CALCIDURAN [Concomitant]
     Indication: OSTEOPOROSIS
     Dosage: 800 IE
     Route: 048
  12. MORAPID [Concomitant]
     Indication: PAIN PROPHYLAXIS
     Dosage: UP TO 6 TIMES DAILY
     Route: 065

REACTIONS (4)
  - Multiple organ dysfunction syndrome [Fatal]
  - Ileus [Fatal]
  - Intentional product use issue [Unknown]
  - Off label use [Unknown]

NARRATIVE: CASE EVENT DATE: 20180322
